FAERS Safety Report 25229707 (Version 1)
Quarter: 2025Q2

REPORT INFORMATION
  Report Type: Spontaneous
  Country: FR (occurrence: FR)
  Receive Date: 20250423
  Receipt Date: 20250423
  Transmission Date: 20250716
  Serious: Yes (Other)
  Sender: ACCORD
  Company Number: None

PATIENT
  Age: 50 Year
  Sex: Female
  Weight: 73 kg

DRUGS (1)
  1. ANASTROZOLE [Suspect]
     Active Substance: ANASTROZOLE
     Indication: Breast cancer
     Dates: start: 20241127, end: 20250104

REACTIONS (2)
  - Hepatic cytolysis [Recovering/Resolving]
  - Cholestasis [Recovering/Resolving]

NARRATIVE: CASE EVENT DATE: 20250104
